FAERS Safety Report 9337148 (Version 1)
Quarter: 2013Q2

REPORT INFORMATION
  Report Type: Spontaneous
  Country: US (occurrence: US)
  Receive Date: 20130607
  Receipt Date: 20130607
  Transmission Date: 20140414
  Serious: Yes (Hospitalization)
  Sender: FDA-Public Use
  Company Number: US-JNJFOC-20130518899

PATIENT
  Age: 12 Year
  Sex: Male
  Weight: 83.46 kg

DRUGS (4)
  1. RISPERDAL CONSTA [Suspect]
     Indication: SCHIZOPHRENIA, PARANOID TYPE
     Route: 030
  2. RISPERDAL CONSTA [Suspect]
     Indication: SCHIZOPHRENIA, PARANOID TYPE
     Route: 030
  3. RISPERIDONE [Suspect]
     Indication: SCHIZOPHRENIA, PARANOID TYPE
     Route: 048
  4. EPITOL [Concomitant]
     Indication: HEADACHE
     Route: 048

REACTIONS (6)
  - Hospitalisation [Unknown]
  - Blindness [Unknown]
  - Hallucination, auditory [Not Recovered/Not Resolved]
  - Drug effect incomplete [Recovered/Resolved]
  - Discomfort [Not Recovered/Not Resolved]
  - Anxiety [Not Recovered/Not Resolved]
